FAERS Safety Report 6358421-6 (Version None)
Quarter: 2009Q3

REPORT INFORMATION
  Report Type: 
  Country: None (occurrence: None)
  Receive Date: 20090916
  Receipt Date: 20090902
  Transmission Date: 20100115
  Serious: Yes (Life-Threatening, Hospitalization)
  Sender: FDA-Public Use
  Company Number: US-ROCHE-654563

PATIENT
  Sex: Male
  Weight: 59 kg

DRUGS (6)
  1. PEGASYS [Suspect]
     Indication: HEPATITIS C
     Dosage: DOSE: 180
     Route: 058
     Dates: start: 20090312
  2. RIBAVIRIN [Suspect]
     Indication: HEPATITIS C
     Dosage: DOSE: 400
     Route: 048
     Dates: start: 20090312
  3. CELEBREX [Concomitant]
     Indication: ARTHRITIS
     Route: 048
  4. VITAMIN B-12 [Concomitant]
     Indication: VITAMIN B12 DEFICIENCY
     Dosage: INDICATION: DEFECIENCY
  5. IBUPROFEN [Concomitant]
     Dosage: AS NECESSARY
     Route: 048
  6. IMODIUM [Concomitant]
     Dosage: AS NECESSARY
     Route: 048

REACTIONS (7)
  - LUNG DISORDER [None]
  - MUSCLE ATROPHY [None]
  - PANCYTOPENIA [None]
  - PNEUMONIA STREPTOCOCCAL [None]
  - RENAL FAILURE ACUTE [None]
  - SEPSIS [None]
  - THROMBOCYTOPENIA [None]
